FAERS Safety Report 24582137 (Version 3)
Quarter: 2025Q1

REPORT INFORMATION
  Report Type: Report from Study
  Country: US (occurrence: US)
  Receive Date: 20241105
  Receipt Date: 20250109
  Transmission Date: 20250408
  Serious: Yes (Other)
  Sender: NOVARTIS
  Company Number: US-002147023-NVSC2024US212465

PATIENT
  Sex: Female

DRUGS (1)
  1. KESIMPTA [Suspect]
     Active Substance: OFATUMUMAB
     Indication: Product used for unknown indication
     Route: 065
     Dates: start: 202408

REACTIONS (6)
  - Muscle rupture [Unknown]
  - Pain [Unknown]
  - Feeling abnormal [Unknown]
  - Asthenia [Unknown]
  - Insomnia [Unknown]
  - Fatigue [Recovered/Resolved]
